FAERS Safety Report 13510291 (Version 3)
Quarter: 2017Q3

REPORT INFORMATION
  Report Type: Report from Study
  Country: FR (occurrence: FR)
  Receive Date: 20170503
  Receipt Date: 20170719
  Transmission Date: 20171127
  Serious: Yes (Death, Hospitalization)
  Sender: FDA-Public Use
  Company Number: FR-JNJFOC-20170501152

PATIENT
  Age: 83 Year
  Sex: Male
  Weight: 73 kg

DRUGS (23)
  1. CORDARONE [Concomitant]
     Active Substance: AMIODARONE HYDROCHLORIDE
     Indication: ARRHYTHMIA
     Dosage: 10 DAYS
     Route: 048
     Dates: start: 20170412
  2. ATORVASTATIN [Concomitant]
     Active Substance: ATORVASTATIN
     Dosage: 1 MONTH
     Route: 048
     Dates: start: 20170412
  3. PERFALGAN [Concomitant]
     Active Substance: ACETAMINOPHEN
     Dosage: 7 DAYS
     Route: 065
  4. CORDARONE [Concomitant]
     Active Substance: AMIODARONE HYDROCHLORIDE
     Indication: ARRHYTHMIA
     Dosage: 30 DAYS
     Route: 048
     Dates: start: 20170425
  5. AMIODARONE [Concomitant]
     Active Substance: AMIODARONE
     Indication: HEART RATE ABNORMAL
     Route: 065
  6. ELIQUIS [Concomitant]
     Active Substance: APIXABAN
     Dosage: 1 MONTH
     Route: 048
     Dates: start: 20170425, end: 20170426
  7. LASILIX [Concomitant]
     Active Substance: FUROSEMIDE
     Dosage: 1 MONTH
     Route: 048
  8. LASILIX [Concomitant]
     Active Substance: FUROSEMIDE
     Dosage: 1 MONTH
     Route: 048
     Dates: start: 20170426
  9. ZYLORIC [Concomitant]
     Active Substance: ALLOPURINOL
     Dosage: 30 DAYS
     Route: 048
     Dates: start: 20170419, end: 20170422
  10. DOLIPRANE [Concomitant]
     Active Substance: ACETAMINOPHEN
     Dosage: 7 DAYS
     Route: 048
     Dates: start: 20170413, end: 20170416
  11. CORDARONE [Concomitant]
     Active Substance: AMIODARONE HYDROCHLORIDE
     Indication: ATRIAL FIBRILLATION
     Dosage: 10 DAYS
     Route: 048
     Dates: start: 20170412
  12. ELIQUIS [Concomitant]
     Active Substance: APIXABAN
     Dosage: 1 MONTH
     Route: 048
     Dates: start: 20170412, end: 20170422
  13. CORTANCYL [Concomitant]
     Active Substance: PREDNISONE
     Dosage: 2 TABLETS, 30 DAYS
     Route: 048
     Dates: start: 20170425
  14. INEXIUM [Concomitant]
     Active Substance: ESOMEPRAZOLE
     Dosage: 30 DAYS
     Route: 048
     Dates: start: 20170412
  15. IBRUTINIB [Suspect]
     Active Substance: IBRUTINIB
     Indication: MANTLE CELL LYMPHOMA
     Route: 048
     Dates: start: 20170412
  16. CORDARONE [Concomitant]
     Active Substance: AMIODARONE HYDROCHLORIDE
     Indication: ATRIAL FIBRILLATION
     Dosage: 30 DAYS
     Route: 048
     Dates: start: 20170425
  17. INEXIUM [Concomitant]
     Active Substance: ESOMEPRAZOLE
     Dosage: 30 DAYS
     Route: 048
     Dates: start: 20170425
  18. KARDEGIC [Concomitant]
     Active Substance: ASPIRIN LYSINE
     Route: 065
  19. AUGMENTIN [Concomitant]
     Active Substance: AMOXICILLIN\CLAVULANATE POTASSIUM
     Dosage: 2 DAYS
     Route: 048
     Dates: start: 20170417, end: 20170419
  20. IBRUTINIB [Suspect]
     Active Substance: IBRUTINIB
     Indication: MANTLE CELL LYMPHOMA
     Route: 048
     Dates: start: 20170323, end: 20170423
  21. CORTANCYL [Concomitant]
     Active Substance: PREDNISONE
     Dosage: 1 WEEK
     Route: 048
     Dates: start: 20170413, end: 20170420
  22. ATORVASTATIN [Concomitant]
     Active Substance: ATORVASTATIN
     Dosage: 1 MONTH
     Route: 048
     Dates: start: 20170425, end: 20170426
  23. CEFOTAXIME [Concomitant]
     Active Substance: CEFOTAXIME SODIUM
     Dosage: 7 DAYS
     Route: 065
     Dates: start: 20170416, end: 20170423

REACTIONS (2)
  - Epistaxis [Recovered/Resolved]
  - Dyspnoea [Fatal]

NARRATIVE: CASE EVENT DATE: 20170411
